FAERS Safety Report 14925513 (Version 3)
Quarter: 2018Q2

REPORT INFORMATION
  Report Type: Report from Study
  Country: None (occurrence: CA)
  Receive Date: 20180522
  Receipt Date: 20180605
  Transmission Date: 20180711
  Serious: Yes (Hospitalization, Other)
  Sender: FDA-Public Use
  Company Number: CA-ABBVIE-18P-028-2359858-00

PATIENT
  Age: 69 Year
  Sex: Male
  Weight: 86.26 kg

DRUGS (17)
  1. VALTREX [Concomitant]
     Active Substance: VALACYCLOVIR HYDROCHLORIDE
     Indication: PRODUCT USED FOR UNKNOWN INDICATION
     Route: 048
  2. VALTREX [Concomitant]
     Active Substance: VALACYCLOVIR HYDROCHLORIDE
  3. BISOPROLOL [Concomitant]
     Active Substance: BISOPROLOL
     Indication: PRODUCT USED FOR UNKNOWN INDICATION
  4. VENCLEXTA [Suspect]
     Active Substance: VENETOCLAX
     Indication: CHRONIC LYMPHOCYTIC LEUKAEMIA
     Route: 048
     Dates: start: 20180403, end: 20180509
  5. PRAMIPEXOLE. [Concomitant]
     Active Substance: PRAMIPEXOLE
     Indication: PRODUCT USED FOR UNKNOWN INDICATION
  6. OXYBUTYNIN. [Concomitant]
     Active Substance: OXYBUTYNIN CHLORIDE
     Indication: PRODUCT USED FOR UNKNOWN INDICATION
     Route: 048
  7. PANTOLOC [Concomitant]
     Active Substance: PANTOPRAZOLE SODIUM
     Indication: PRODUCT USED FOR UNKNOWN INDICATION
     Route: 048
  8. ZOPICLONE [Concomitant]
     Active Substance: ZOPICLONE
     Indication: PRODUCT USED FOR UNKNOWN INDICATION
     Dosage: PRN
  9. AMOXICLAV [Concomitant]
     Active Substance: AMOXICILLIN\CLAVULANIC ACID
     Indication: PRODUCT USED FOR UNKNOWN INDICATION
  10. ETHACRYNIC ACID. [Concomitant]
     Active Substance: ETHACRYNIC ACID
     Indication: PRODUCT USED FOR UNKNOWN INDICATION
     Route: 048
  11. KIVEXA [Concomitant]
     Active Substance: ABACAVIR SULFATE\LAMIVUDINE
     Indication: PRODUCT USED FOR UNKNOWN INDICATION
  12. RALTEGRAVIR. [Concomitant]
     Active Substance: RALTEGRAVIR
     Indication: PRODUCT USED FOR UNKNOWN INDICATION
     Route: 048
  13. BISOPROLOL [Concomitant]
     Active Substance: BISOPROLOL
     Indication: PRODUCT USED FOR UNKNOWN INDICATION
     Route: 048
  14. LOPERAMIDE [Concomitant]
     Active Substance: LOPERAMIDE
     Indication: PRODUCT USED FOR UNKNOWN INDICATION
     Dosage: AS NEEDED
     Route: 048
  15. RALTEGRAVIR. [Concomitant]
     Active Substance: RALTEGRAVIR
     Route: 048
  16. ZOPICLONE [Concomitant]
     Active Substance: ZOPICLONE
     Dosage: AT BEDTIME AS NEEDED
  17. ONDANSETRON [Concomitant]
     Active Substance: ONDANSETRON
     Indication: PRODUCT USED FOR UNKNOWN INDICATION
     Route: 048

REACTIONS (6)
  - Fluid retention [Recovered/Resolved]
  - Heart rate increased [Recovering/Resolving]
  - Lung infiltration [Recovering/Resolving]
  - Atypical pneumonia [Recovered/Resolved]
  - Pneumonia [Recovered/Resolved]
  - Palpitations [Unknown]

NARRATIVE: CASE EVENT DATE: 2018
